FAERS Safety Report 25756185 (Version 1)
Quarter: 2025Q3

REPORT INFORMATION
  Report Type: Spontaneous
  Country: US (occurrence: None)
  Receive Date: 20250903
  Receipt Date: 20250903
  Transmission Date: 20251020
  Serious: Yes (Death)
  Sender: FDA-CTU
  Company Number: None

PATIENT
  Age: 54 Year
  Sex: Male

DRUGS (11)
  1. REPATHA [Suspect]
     Active Substance: EVOLOCUMAB
     Indication: Hyperlipidaemia
     Route: 058
     Dates: start: 20250429
  2. VRAYLAR 3MG GAPSULES [Concomitant]
  3. METHYLPHENIDATE HYDROCHLORIDE [Concomitant]
     Active Substance: METHYLPHENIDATE HYDROCHLORIDE
  4. LOKELMA [Concomitant]
     Active Substance: SODIUM ZIRCONIUM CYCLOSILICATE
  5. CLONIDINE [Concomitant]
     Active Substance: CLONIDINE
  6. METOPROLOL SUCCINATE [Concomitant]
     Active Substance: METOPROLOL SUCCINATE
  7. SODIUM BICARBONATE 10GR(650MG) TABS [Concomitant]
  8. AMLODIPINE BESYLATE 10MGTABLETS [Concomitant]
  9. MUPIROCIN 2% OINTMENT 15GM [Concomitant]
  10. MOUNJARO 5MG/0.5ML INJ (4 PENS) [Concomitant]
  11. NIFEDIPINE [Concomitant]
     Active Substance: NIFEDIPINE

REACTIONS (1)
  - Myocardial infarction [None]

NARRATIVE: CASE EVENT DATE: 20250901
